FAERS Safety Report 6366826-2 (Version None)
Quarter: 2009Q3

REPORT INFORMATION
  Report Type: 
  Country: None (occurrence: None)
  Receive Date: 20090921
  Receipt Date: 20090914
  Transmission Date: 20100115
  Serious: Yes (Other)
  Sender: FDA-Public Use
  Company Number: JP-B.I. PHARMACEUTICALS,INC./RIDGEFIELD-2009-BP-10830NB

PATIENT

DRUGS (12)
  1. MICARDIS [Suspect]
     Dosage: 40 MG
     Route: 048
  2. LIPITOR [Suspect]
     Dosage: 20 MG
     Route: 048
     Dates: start: 20081101
  3. GASTER [Suspect]
     Dosage: 20 MG
     Route: 048
  4. MAINTATE [Suspect]
     Dosage: 2.5 MG
     Route: 048
  5. ASPIRIN [Suspect]
     Dosage: 100 MG
     Route: 048
  6. SALOBEL [Suspect]
     Dosage: 100 MG
     Route: 048
  7. CONIEL [Suspect]
     Dosage: 4 MG
     Route: 048
  8. PANALDINE [Suspect]
     Dosage: 100 MG
     Route: 048
  9. THEO-DUR [Suspect]
     Dosage: 100 MG
     Route: 048
  10. LAXOBERON SOLUTION [Suspect]
     Dosage: 5 MG
     Route: 048
  11. FRANDOL S [Suspect]
     Dosage: 40 MG
     Route: 065
  12. FOSAMAC 35MG [Suspect]
     Dosage: 35 MG
     Route: 048

REACTIONS (5)
  - ALANINE AMINOTRANSFERASE INCREASED [None]
  - ASPARTATE AMINOTRANSFERASE INCREASED [None]
  - BLOOD ALKALINE PHOSPHATASE INCREASED [None]
  - BLOOD LACTATE DEHYDROGENASE INCREASED [None]
  - GAMMA-GLUTAMYLTRANSFERASE INCREASED [None]
